FAERS Safety Report 11200801 (Version 3)
Quarter: 2015Q3

REPORT INFORMATION
  Report Type: Report from Study
  Country: US (occurrence: US)
  Receive Date: 20150618
  Receipt Date: 20150715
  Transmission Date: 20151125
  Serious: Yes (Hospitalization)
  Sender: FDA-Public Use
  Company Number: US-ACTELION-A-US2014-98093

PATIENT
  Age: 83 Year
  Sex: Male

DRUGS (7)
  1. OXYGEN. [Concomitant]
     Active Substance: OXYGEN
     Dosage: 6 L, UNK
     Dates: end: 201204
  2. TYVASO [Concomitant]
     Active Substance: TREPROSTINIL
     Dosage: UNK
     Dates: end: 20150531
  3. MACITENTAN [Suspect]
     Active Substance: MACITENTAN
     Indication: PULMONARY ARTERIAL HYPERTENSION
     Dosage: 10 MG, QD
     Route: 048
     Dates: start: 20131212
  4. RIOCIGUAT [Concomitant]
     Active Substance: RIOCIGUAT
  5. TREPROSTINIL DIOLAMIN [Concomitant]
     Active Substance: TREPROSTINIL DIOLAMINE
     Dosage: UNK
     Dates: start: 20150601
  6. WARFARIN [Concomitant]
     Active Substance: WARFARIN
  7. OXYGEN. [Concomitant]
     Active Substance: OXYGEN
     Dosage: 8 L, UNK
     Dates: start: 201204

REACTIONS (12)
  - Lung infiltration [Unknown]
  - Nasal congestion [Unknown]
  - Agitation [Unknown]
  - Oxygen saturation decreased [Unknown]
  - Haemoptysis [Unknown]
  - Dyspnoea [Unknown]
  - Anxiety [Unknown]
  - Hypoxia [Unknown]
  - Feeling abnormal [Unknown]
  - Pneumonia [Unknown]
  - Lung infection [Unknown]
  - Asthenia [Unknown]
